FAERS Safety Report 8503485-4 (Version None)
Quarter: 2012Q3

REPORT INFORMATION
  Report Type: 
  Country: None (occurrence: None)
  Receive Date: 20120711
  Receipt Date: 20120703
  Transmission Date: 20120928
  Serious: No
  Sender: FDA-Public Use
  Company Number: JP-GLAXOSMITHKLINE-B0797599A

PATIENT
  Age: 41 Year
  Sex: Male

DRUGS (6)
  1. DEPAKENE [Concomitant]
     Dosage: 400MG PER DAY
     Route: 048
  2. LAMICTAL [Suspect]
     Indication: BIPOLAR I DISORDER
     Dosage: 25MG PER DAY
     Route: 048
     Dates: start: 20110809, end: 20110823
  3. LITHIUM CARBONATE [Concomitant]
     Dosage: 400MG PER DAY
     Route: 048
  4. PAXIL [Concomitant]
     Dosage: 40MG PER DAY
     Route: 048
  5. SEROQUEL [Concomitant]
     Dosage: 100MG PER DAY
     Route: 048
  6. LAMICTAL [Suspect]
     Dosage: 100MG PER DAY
     Route: 048
     Dates: start: 20110824, end: 20110826

REACTIONS (1)
  - ENURESIS [None]
